FAERS Safety Report 13456936 (Version 2)
Quarter: 2017Q2

REPORT INFORMATION
  Report Type: Spontaneous
  Country: US (occurrence: US)
  Receive Date: 20170418
  Receipt Date: 20170505
  Transmission Date: 20170830
  Serious: Yes (Other)
  Sender: FDA-Public Use
  Company Number: US-BAXTER-2017BAX016271

PATIENT
  Age: 20 Year
  Sex: Female
  Weight: 78.09 kg

DRUGS (3)
  1. LACTATED RINGERS [Suspect]
     Active Substance: CALCIUM CHLORIDE\POTASSIUM CHLORIDE\SODIUM CHLORIDE\SODIUM LACTATE
     Dosage: 125 CC/HR, IV FLUIDS
     Route: 042
     Dates: start: 20170316, end: 20170316
  2. LACTATED RINGERS [Suspect]
     Active Substance: CALCIUM CHLORIDE\POTASSIUM CHLORIDE\SODIUM CHLORIDE\SODIUM LACTATE
     Indication: FLUID REPLACEMENT
     Dosage: 125 CC/HR, IV FLUIDS
     Route: 042
     Dates: start: 20170316, end: 20170316
  3. PITOCIN [Suspect]
     Active Substance: OXYTOCIN
     Indication: LABOUR INDUCTION
     Route: 065
     Dates: start: 20170316, end: 20170316

REACTIONS (4)
  - Accidental exposure to product [Recovered/Resolved]
  - Haemorrhage [Recovered/Resolved]
  - Exposure during pregnancy [Recovered/Resolved]
  - Device connection issue [Recovered/Resolved]

NARRATIVE: CASE EVENT DATE: 20170316
